FAERS Safety Report 19610681 (Version 2)
Quarter: 2021Q3

REPORT INFORMATION
  Report Type: Spontaneous
  Country: US (occurrence: US)
  Receive Date: 20210726
  Receipt Date: 20210914
  Transmission Date: 20211014
  Serious: No
  Sender: FDA-Public Use
  Company Number: US-ALXN-A202108323

PATIENT
  Age: 45 Year
  Sex: Female

DRUGS (1)
  1. SOLIRIS [Suspect]
     Active Substance: ECULIZUMAB
     Indication: NEUROMYELITIS OPTICA SPECTRUM DISORDER
     Dosage: 450 MG, UNK
     Route: 065
     Dates: start: 202107

REACTIONS (6)
  - Ecchymosis [Unknown]
  - Infusion site haemorrhage [Unknown]
  - Palpitations [Unknown]
  - Muscular weakness [Unknown]
  - Fatigue [Unknown]
  - Blood potassium increased [Unknown]

NARRATIVE: CASE EVENT DATE: 202107
